FAERS Safety Report 9266256 (Version 1)
Quarter: 2013Q2

REPORT INFORMATION
  Report Type: Spontaneous
  Country: DE (occurrence: DE)
  Receive Date: 20130502
  Receipt Date: 20130502
  Transmission Date: 20140414
  Serious: Yes (Other)
  Sender: FDA-Public Use
  Company Number: DE-MERCK-1304DEU017285

PATIENT
  Age: 72 Year
  Sex: Female
  Weight: 85 kg

DRUGS (1)
  1. LORZAAR PLUS 50/12,5 MG FILMTABLETTEN [Suspect]
     Indication: HYPERTENSION
     Dosage: 50/12,5, QD
     Dates: start: 201203, end: 201212

REACTIONS (2)
  - Syncope [Unknown]
  - Fracture [Unknown]
